FAERS Safety Report 4902784-2 (Version None)
Quarter: 2006Q1

REPORT INFORMATION
  Report Type: 
  Country: None (occurrence: None)
  Receive Date: 20060207
  Receipt Date: 20060126
  Transmission Date: 20060701
  Serious: Yes (Hospitalization)
  Sender: FDA-Public Use
  Company Number: GB-GLAXOSMITHKLINE-B0364315C

PATIENT

DRUGS (2)
  1. ROSIGLITAZONE [Suspect]
     Route: 048
     Dates: start: 20020311, end: 20051102
  2. GLICLAZIDE [Concomitant]
     Route: 048
     Dates: start: 20010925

REACTIONS (3)
  - FALL [None]
  - HYPOGLYCAEMIA [None]
  - SKIN LACERATION [None]
